FAERS Safety Report 5014739-0 (Version None)
Quarter: 2006Q2

REPORT INFORMATION
  Report Type: 
  Country: None (occurrence: None)
  Receive Date: 20060531
  Receipt Date: 20060523
  Transmission Date: 20061013
  Serious: Yes (Death)
  Sender: FDA-Public Use
  Company Number: JP-JPN-A200601675

PATIENT
  Age: 3 Year
  Sex: Male
  Weight: 12 kg

DRUGS (23)
  1. ALKERAN [Suspect]
     Indication: STEM CELL TRANSPLANT
     Dosage: 58MGM2 PER DAY
     Route: 042
     Dates: start: 20060225, end: 20060226
  2. PARAPLATIN [Suspect]
     Indication: STEM CELL TRANSPLANT
     Dosage: 175MGM2 PER DAY
     Route: 042
     Dates: start: 20060223, end: 20060226
  3. ETOPOSIDE [Concomitant]
     Indication: STEM CELL TRANSPLANT
     Route: 042
     Dates: start: 20060223, end: 20060226
  4. NEUTROGIN [Concomitant]
     Route: 058
     Dates: start: 20060301, end: 20060303
  5. GASTER [Concomitant]
     Route: 042
     Dates: start: 20060223
  6. NEO-MINOPHAGEN-C [Concomitant]
     Route: 042
     Dates: start: 20060223
  7. KYTRIL [Concomitant]
     Route: 042
     Dates: start: 20060223
  8. MIRACLID [Concomitant]
     Route: 042
     Dates: start: 20060228
  9. FUTHAN [Concomitant]
     Route: 042
     Dates: start: 20060227
  10. CARBENIN [Concomitant]
     Route: 042
     Dates: start: 20060227
  11. FUNGUARD [Concomitant]
     Route: 042
     Dates: start: 20060228
  12. HAPTOGLOBIN [Concomitant]
     Route: 042
     Dates: start: 20060301, end: 20060301
  13. SAXIZON [Concomitant]
     Dates: start: 20060228, end: 20060301
  14. ALBUMIN [Concomitant]
     Route: 042
     Dates: start: 20060302
  15. LASIX [Concomitant]
     Route: 042
     Dates: start: 20060302
  16. INOVAN [Concomitant]
     Route: 042
     Dates: start: 20060303, end: 20060303
  17. DOBUTREX [Concomitant]
     Route: 042
     Dates: start: 20060303, end: 20060303
  18. CALCICOL [Concomitant]
     Route: 042
     Dates: start: 20060303, end: 20060303
  19. MEYLON [Concomitant]
     Route: 042
     Dates: start: 20060303, end: 20060303
  20. ATROPINE SULFATE [Concomitant]
     Route: 042
     Dates: start: 20060303, end: 20060303
  21. BOSMIN [Concomitant]
     Route: 058
     Dates: start: 20060303, end: 20060303
  22. ATARAX [Concomitant]
     Route: 042
     Dates: start: 20060228, end: 20060301
  23. FLUID [Concomitant]

REACTIONS (8)
  - ANURIA [None]
  - BLOOD AMYLASE INCREASED [None]
  - BLOOD CREATINE PHOSPHOKINASE INCREASED [None]
  - BLOOD CREATININE INCREASED [None]
  - BLOOD TRIGLYCERIDES INCREASED [None]
  - BLOOD UREA INCREASED [None]
  - CARDIAC FAILURE ACUTE [None]
  - RENAL FAILURE ACUTE [None]
